FAERS Safety Report 22304753 (Version 1)
Quarter: 2023Q2

REPORT INFORMATION
  Report Type: Spontaneous
  Country: US (occurrence: None)
  Receive Date: 20230509
  Receipt Date: 20230509
  Transmission Date: 20230722
  Serious: No
  Sender: FDA-Public Use
  Company Number: None

PATIENT
  Age: 33 Year
  Sex: Female

DRUGS (4)
  1. VTAMA [Suspect]
     Active Substance: TAPINAROF
     Indication: Fungal skin infection
     Dosage: FREQUENCY : DAILY;?
     Route: 061
     Dates: start: 20230508, end: 20230509
  2. KETOCONAZOLE [Concomitant]
     Active Substance: KETOCONAZOLE
  3. OMEPRAZOLE [Concomitant]
     Active Substance: OMEPRAZOLE
  4. CLARITIN [Concomitant]
     Active Substance: LORATADINE

REACTIONS (6)
  - Headache [None]
  - Middle insomnia [None]
  - Pain [None]
  - Chills [None]
  - Diarrhoea [None]
  - Nausea [None]

NARRATIVE: CASE EVENT DATE: 20230509
